FAERS Safety Report 4892210-4 (Version None)
Quarter: 2006Q1

REPORT INFORMATION
  Report Type: 
  Country: None (occurrence: None)
  Receive Date: 20060123
  Receipt Date: 20060111
  Transmission Date: 20060701
  Serious: Yes (Hospitalization)
  Sender: FDA-Public Use
  Company Number: 2006003390

PATIENT
  Age: 2 Year
  Sex: Male

DRUGS (1)
  1. NORVASC [Suspect]
     Indication: ILL-DEFINED DISORDER
     Dosage: 5 MG (2.5 MG, 1 IN 1 D), ORAL
     Route: 048
     Dates: start: 20051220

REACTIONS (1)
  - ACCIDENTAL DRUG INTAKE BY CHILD [None]
